FAERS Safety Report 5007144-4 (Version None)
Quarter: 2006Q2

REPORT INFORMATION
  Report Type: 
  Country: None (occurrence: None)
  Receive Date: 20060519
  Receipt Date: 20060328
  Transmission Date: 20061013
  Serious: Yes (Hospitalization)
  Sender: FDA-Public Use
  Company Number: JP-MERCK-0603USA04692

PATIENT
  Age: 61 Year
  Sex: Male
  Weight: 58 kg

DRUGS (6)
  1. COZAAR [Suspect]
     Indication: HYPERTENSION
     Route: 048
     Dates: start: 20060215, end: 20060324
  2. PANALDINE [Suspect]
     Indication: STENT PLACEMENT
     Route: 048
     Dates: start: 20060215, end: 20060313
  3. ASPIRIN [Concomitant]
     Indication: STENT PLACEMENT
     Route: 048
     Dates: start: 20051201
  4. SIGMART [Concomitant]
     Route: 048
     Dates: start: 20060215, end: 20060301
  5. LAFUTIDINE [Suspect]
     Indication: GASTRITIS
     Route: 048
     Dates: start: 20060223, end: 20060324
  6. ADALAT [Concomitant]
     Indication: HYPERTENSION
     Route: 048
     Dates: start: 20051201, end: 20060324

REACTIONS (1)
  - LIVER DISORDER [None]
